FAERS Safety Report 10313639 (Version 5)
Quarter: 2014Q4

REPORT INFORMATION
  Report Type: Spontaneous
  Country: JP (occurrence: JP)
  Receive Date: 20140718
  Receipt Date: 20141204
  Transmission Date: 20150528
  Serious: Yes (Death, Hospitalization)
  Sender: FDA-Public Use
  Company Number: JP-SA-2014SA094554

PATIENT
  Age: 61 Year
  Sex: Male
  Weight: 56 kg

DRUGS (10)
  1. ELPLAT [Suspect]
     Active Substance: OXALIPLATIN
     Indication: PANCREATIC CARCINOMA
     Dosage: 74.1 MG/M2
     Route: 041
     Dates: start: 20140702, end: 20140702
  2. RAMOSETRON HYDROCHLORIDE [Concomitant]
     Active Substance: RAMOSETRON HYDROCHLORIDE
     Dates: start: 20140702, end: 20140702
  3. EMEND [Concomitant]
     Active Substance: APREPITANT
     Dates: start: 20140702, end: 20140704
  4. 5-FU [Suspect]
     Active Substance: FLUOROURACIL
     Indication: PANCREATIC CARCINOMA
     Dosage: 2369.7MG/M2/D1-2
     Route: 040
     Dates: start: 20140702, end: 20140702
  5. CALCIUM LEVOFOLINATE [Concomitant]
     Active Substance: LEVOLEUCOVORIN CALCIUM
     Dosage: 177.7 MG/M2
     Dates: start: 20140702, end: 20140702
  6. GRAN [Concomitant]
     Active Substance: FILGRASTIM
     Dates: start: 20140712, end: 20140715
  7. 5-FU [Suspect]
     Active Substance: FLUOROURACIL
     Indication: PANCREATIC CARCINOMA
     Route: 041
     Dates: start: 20140702, end: 20140703
  8. DECADRON [Concomitant]
     Active Substance: DEXAMETHASONE
     Dates: start: 20140702, end: 20140704
  9. NOREPINEPHRINE [Concomitant]
     Active Substance: NOREPINEPHRINE\NOREPINEPHRINE BITARTRATE
     Dates: start: 20140712, end: 20140715
  10. CAMPTO [Suspect]
     Active Substance: IRINOTECAN
     Indication: PANCREATIC CARCINOMA
     Dosage: 142.2 MG/M2
     Route: 041
     Dates: start: 20140702, end: 20140702

REACTIONS (6)
  - Febrile neutropenia [Recovering/Resolving]
  - Infection [Fatal]
  - Septic shock [Recovering/Resolving]
  - Disseminated intravascular coagulation [Fatal]
  - Ileus [Not Recovered/Not Resolved]
  - Diarrhoea [Recovered/Resolved]

NARRATIVE: CASE EVENT DATE: 20140710
